FAERS Safety Report 6539995-9 (Version None)
Quarter: 2010Q1

REPORT INFORMATION
  Report Type: 
  Country: None (occurrence: None)
  Receive Date: 20100115
  Receipt Date: 20100108
  Transmission Date: 20100710
  Serious: Yes (Other)
  Sender: FDA-Public Use
  Company Number: PHHY2010TH01063

PATIENT
  Age: 70 Year
  Sex: Male

DRUGS (6)
  1. EXELON [Suspect]
     Dosage: 5CM2,UNK
  2. EXELON [Suspect]
     Dosage: 10CM2,UNK
  3. SIMVASTATIN [Concomitant]
     Dosage: UNK,UNK
  4. HYDROCHLOROTHIAZIDE [Concomitant]
     Dosage: UNK,UNK
  5. ENALAPRIL [Concomitant]
     Dosage: UNK,UNK
  6. MULTI-VITAMIN [Concomitant]
     Dosage: UNK,UNK

REACTIONS (3)
  - AORTIC VALVE INCOMPETENCE [None]
  - BLOOD PRESSURE INCREASED [None]
  - DYSPNOEA [None]
